FAERS Safety Report 6128878-4 (Version None)
Quarter: 2009Q1

REPORT INFORMATION
  Report Type: 
  Country: None (occurrence: None)
  Receive Date: 20090320
  Receipt Date: 20090305
  Transmission Date: 20090719
  Serious: Yes (Hospitalization)
  Sender: FDA-Public Use
  Company Number: 14207906

PATIENT
  Sex: Female
  Weight: 68.03 kg

DRUGS (15)
  1. EMSAM [Suspect]
     Indication: DEPRESSION
     Dosage: 12 MILLIGRAM, 24 HOUR
     Dates: start: 20070801
  2. LITHIUM CARBONATE [Suspect]
  3. COZAAR [Concomitant]
  4. AMLODIPINE BESYLATE [Concomitant]
  5. SYNTHROID [Concomitant]
  6. ZOFRAN [Concomitant]
  7. VITAMIN E [Concomitant]
  8. NEURONTIN [Concomitant]
  9. TYLENOL [Concomitant]
  10. NEXIUM [Concomitant]
  11. SINGULAIR [Concomitant]
  12. TAGAMET [Concomitant]
  13. VALTREX [Concomitant]
  14. PHENERGAN [Concomitant]
  15. MOBIC [Suspect]

REACTIONS (12)
  - APPLICATION SITE RASH [None]
  - GASTRITIS [None]
  - GLOSSODYNIA [None]
  - HYPOPHAGIA [None]
  - JAW DISORDER [None]
  - NAUSEA [None]
  - OESOPHAGEAL DISORDER [None]
  - POST PROCEDURAL COMPLICATION [None]
  - PRURITUS [None]
  - RENAL FAILURE [None]
  - SUICIDAL IDEATION [None]
  - URTICARIA [None]
